FAERS Safety Report 16172204 (Version 1)
Quarter: 2019Q2

REPORT INFORMATION
  Report Type: Spontaneous
  Country: US (occurrence: US)
  Receive Date: 20190409
  Receipt Date: 20190409
  Transmission Date: 20190711
  Serious: No
  Sender: FDA-Public Use
  Company Number: US-B.I. PHARMACEUTICALS,INC./RIDGEFIELD-2019-BI-016130

PATIENT
  Sex: Female

DRUGS (17)
  1. SPIRIVA RESPIMAT [Suspect]
     Active Substance: TIOTROPIUM BROMIDE
     Indication: PRODUCT USED FOR UNKNOWN INDICATION
     Dosage: 2 PUFF BY INHALATION ROUTE EVERY DAY AT THE SAME TIME EACH DAY
     Route: 055
     Dates: start: 20180116
  2. PROMETHAZINE [Concomitant]
     Active Substance: PROMETHAZINE\PROMETHAZINE HYDROCHLORIDE
     Indication: PRODUCT USED FOR UNKNOWN INDICATION
     Dosage: DIRECTIONS: TAKE 1 TABLET BY ORAL ROUTE EVERY 4-6 HOURS AS NEEDED
     Route: 048
     Dates: start: 20180410
  3. LEVOTHYROXINE. [Concomitant]
     Active Substance: LEVOTHYROXINE
     Indication: PRODUCT USED FOR UNKNOWN INDICATION
     Route: 065
     Dates: start: 20171013
  4. POTASSIUM CHLORIDE. [Concomitant]
     Active Substance: POTASSIUM CHLORIDE
     Indication: PRODUCT USED FOR UNKNOWN INDICATION
     Dosage: FORM: CAPSULE, EXTENDED RELEASE?DIRECTIONS: TAKE 1 CAPSULE BY ORAL ROUTE EVERY DAY WITH FOOD
     Route: 048
     Dates: start: 20180228
  5. VITAMIN D3 [Concomitant]
     Active Substance: CHOLECALCIFEROL
     Indication: PRODUCT USED FOR UNKNOWN INDICATION
     Dosage: 1000 UNIT?2000 UNIT DAILY DOSE
     Route: 065
  6. CARTIA XT [Concomitant]
     Active Substance: DILTIAZEM HYDROCHLORIDE
     Indication: PRODUCT USED FOR UNKNOWN INDICATION
     Dosage: FORM: CAPSULE, EXTENDED RELEASE
     Route: 048
     Dates: start: 20180126
  7. KLOR-CON [Concomitant]
     Active Substance: POTASSIUM CHLORIDE
     Indication: PRODUCT USED FOR UNKNOWN INDICATION
     Dosage: FORM: TABLET, EXTENDED RELEASE
     Route: 048
     Dates: start: 20171013
  8. NITROFURANTOIN MONOHYDRATE MACROCRYSTALS [Concomitant]
     Active Substance: NITROFURANTOIN\NITROFURANTOIN MONOHYDRATE
     Indication: PRODUCT USED FOR UNKNOWN INDICATION
     Dosage: DIRECTIONS: TAKE 1 CAPSULE BY ORAL ROUTE EVERY 12 HOURS WITH FOOD
     Route: 048
     Dates: start: 20171013
  9. VENTOLIN [Concomitant]
     Active Substance: ALBUTEROL SULFATE
     Indication: PRODUCT USED FOR UNKNOWN INDICATION
     Dosage: FORM: AEROSOL INHALER?DIRECTION: INHALE 2 PUFF BY INHALATION ROUTE EVERY 4-6 HOURS AS NEEDED
     Route: 055
     Dates: start: 20170424
  10. ALBUTEROL SULFATE. [Concomitant]
     Active Substance: ALBUTEROL SULFATE
     Indication: PRODUCT USED FOR UNKNOWN INDICATION
     Dosage: 2.5 MG / 3 ML (0.083%)?DIRECTIONS: INHALE 3 ML BY NEBULIZATION ROUTE EVERY 4-6 HOURS AS NEEDED
     Route: 050
     Dates: start: 201709
  11. VITAMIN C [Concomitant]
     Active Substance: ASCORBIC ACID
     Indication: PRODUCT USED FOR UNKNOWN INDICATION
     Route: 065
  12. OXYGEN. [Concomitant]
     Active Substance: OXYGEN
     Indication: PRODUCT USED FOR UNKNOWN INDICATION
     Dosage: PLEASE PROVIDE PATIENT WITH INOGEN G3 PORTABLE OXYGEN CONCENTRATOR 2L PULSE O2 VIA NASAL CANNULA
     Route: 055
  13. DULERA [Concomitant]
     Active Substance: FORMOTEROL FUMARATE DIHYDRATE\MOMETASONE FUROATE
     Indication: PRODUCT USED FOR UNKNOWN INDICATION
     Dosage: 200 MCG-5 MCG / ACTUATION HFA?2 PUFF BY INHALATION 2 TIME EVERY DAY IN THE MORNING AND EVENING
     Route: 055
     Dates: start: 20180116
  14. VITAMIN B12 [Concomitant]
     Active Substance: CYANOCOBALAMIN
     Indication: PRODUCT USED FOR UNKNOWN INDICATION
     Route: 060
  15. FUROSEMIDE. [Concomitant]
     Active Substance: FUROSEMIDE
     Indication: PRODUCT USED FOR UNKNOWN INDICATION
     Route: 048
     Dates: start: 20180402
  16. ASPIRIN. [Concomitant]
     Active Substance: ASPIRIN
     Indication: PRODUCT USED FOR UNKNOWN INDICATION
     Dosage: FORM: TABLET, DELAYED RELEASE
     Route: 048
     Dates: start: 20180402
  17. PRESERVISION AREDS 2 [Concomitant]
     Active Substance: MINERALS\VITAMINS
     Indication: PRODUCT USED FOR UNKNOWN INDICATION
     Dosage: DIRECTION: TAKE 1 CAPSULE ORAL ROUTE 2 TIMES EVERY DAY?250 MG - 200 UNIT - 40 MG - 1 MG CAPSULE
     Route: 048
     Dates: start: 20180228

REACTIONS (1)
  - Dyspnoea [Unknown]
